FAERS Safety Report 10013931 (Version 1)
Quarter: 2014Q1

REPORT INFORMATION
  Report Type: Spontaneous
  Country: US (occurrence: US)
  Receive Date: 20140316
  Receipt Date: 20140316
  Transmission Date: 20141002
  Serious: No
  Sender: FDA-Public Use
  Company Number: US-LUNDBECK-DKLU1096358

PATIENT
  Age: 38 Year
  Sex: Male

DRUGS (3)
  1. ONFI [Suspect]
     Indication: LENNOX-GASTAUT SYNDROME
     Route: 048
     Dates: start: 201308
  2. ONFI [Suspect]
     Indication: EPILEPSY
  3. TEMPRA [Suspect]
     Indication: NASOPHARYNGITIS
     Dates: start: 201312, end: 201312

REACTIONS (3)
  - Nasopharyngitis [Unknown]
  - Unevaluable event [Unknown]
  - Dizziness [Unknown]
